FAERS Safety Report 23410337 (Version 1)
Quarter: 2024Q1

REPORT INFORMATION
  Report Type: Spontaneous
  Country: US (occurrence: None)
  Receive Date: 20240116
  Receipt Date: 20240116
  Transmission Date: 20240410
  Serious: Yes (unspecified)
  Sender: FDA-Public Use
  Company Number: None

PATIENT
  Age: 56 Year
  Sex: Female

DRUGS (1)
  1. MELOXICAM [Suspect]
     Active Substance: MELOXICAM
     Indication: Muscle strain
     Dosage: FREQUENCY : DAILY;?
     Dates: start: 20231128, end: 20231203

REACTIONS (4)
  - Dyspepsia [None]
  - Pain [None]
  - Ulcer [None]
  - Arthritis [None]

NARRATIVE: CASE EVENT DATE: 20231204
